FAERS Safety Report 6569992-9 (Version None)
Quarter: 2010Q1

REPORT INFORMATION
  Report Type: 
  Country: None (occurrence: None)
  Receive Date: 20100204
  Receipt Date: 20100203
  Transmission Date: 20100710
  Serious: Yes (Hospitalization)
  Sender: FDA-Public Use
  Company Number: PL-EISAI INC.-E2090-00885-CLI-PL

PATIENT
  Sex: Male
  Weight: 77 kg

DRUGS (3)
  1. ZONISAMIDE [Suspect]
     Indication: EPILEPSY
     Route: 048
     Dates: start: 20090121, end: 20090202
  2. ZONISAMIDE [Suspect]
     Route: 048
     Dates: start: 20090203, end: 20090217
  3. ZONISAMIDE [Suspect]
     Route: 048
     Dates: start: 20090218

REACTIONS (1)
  - BONE PAIN [None]
